FAERS Safety Report 8963979 (Version 1)
Quarter: 2012Q4

REPORT INFORMATION
  Report Type: 
  Country: US (occurrence: US)
  Receive Date: 20121214
  Receipt Date: 20121214
  Transmission Date: 20130627
  Serious: Yes (Other)
  Sender: FDA-Public Use
  Company Number: US-BAYER-2012-129916

PATIENT
  Age: 47 Year
  Sex: Female
  Weight: 107 kg

DRUGS (8)
  1. YAZ [Suspect]
     Dosage: UNK
     Dates: start: 20050829, end: 20060907
  2. YAZ [Suspect]
     Dosage: UNK
     Dates: start: 20061127, end: 20061127
  3. YAZ [Suspect]
     Dosage: UNK
     Dates: start: 20071229, end: 20100512
  4. GIANVI [Suspect]
  5. YASMIN [Suspect]
     Dosage: UNK
     Dates: start: 20100120, end: 20120314
  6. TOPIRAMATE [Concomitant]
     Dosage: 100 mg tabs one-fourth tab 2 times daily
     Route: 048
  7. NAPROXEN [Concomitant]
  8. LORTAB [Concomitant]

REACTIONS (1)
  - Deep vein thrombosis [None]
